FAERS Safety Report 5454217-8 (Version None)
Quarter: 2007Q3

REPORT INFORMATION
  Report Type: 
  Country: None (occurrence: None)
  Receive Date: 20070917
  Receipt Date: 20070905
  Transmission Date: 20080115
  Serious: Yes (Other)
  Sender: FDA-Public Use
  Company Number: US-PFIZER INC-2007062475

PATIENT
  Sex: Male
  Weight: 72.7 kg

DRUGS (6)
  1. XALATAN [Suspect]
     Indication: CATARACT
     Dosage: DAILY DOSE:1DROP
     Dates: start: 20040101, end: 20070601
  2. XALATAN [Suspect]
     Indication: INTRAOCULAR PRESSURE INCREASED
  3. ATIVAN [Concomitant]
  4. LISINOPRIL [Concomitant]
  5. IBUPROFEN [Concomitant]
  6. ALL OTHER THERAPEUTIC PRODUCTS [Concomitant]

REACTIONS (3)
  - BLINDNESS UNILATERAL [None]
  - DIPLOPIA [None]
  - VISUAL ACUITY REDUCED [None]
